FAERS Safety Report 9936748 (Version 2)
Quarter: 2014Q2

REPORT INFORMATION
  Report Type: Spontaneous
  Country: US (occurrence: None)
  Receive Date: 20140107
  Receipt Date: 20140402
  Transmission Date: 20141212
  Serious: No
  Sender: FDA-Public Use
  Company Number: SP07257

PATIENT
  Age: 66 Year
  Sex: Male
  Weight: 98.2 kg

DRUGS (5)
  1. FULYZAQ [Suspect]
     Indication: DIARRHOEA
     Dosage: 250 MG (125 MG, 2 IN 1 D), ORAL
     Route: 048
     Dates: start: 201308
  2. FULYZAQ [Suspect]
     Indication: FLATULENCE
     Dosage: 250 MG (125 MG, 2 IN 1 D), ORAL
     Route: 048
     Dates: start: 201308
  3. LEVAQUIN [Concomitant]
  4. LEVAQUIN [Concomitant]
  5. FLAGYL [Concomitant]

REACTIONS (1)
  - Pruritus [None]
